FAERS Safety Report 16612094 (Version 2)
Quarter: 2020Q3

REPORT INFORMATION
  Report Type: Other
  Country: US (occurrence: US)
  Receive Date: 20190722
  Receipt Date: 20200720
  Transmission Date: 20201102
  Serious: Yes (Hospitalization)
  Sender: FDA-Public Use
  Company Number: US-ROCHE-2315392

PATIENT
  Age: 81 Year
  Sex: Male

DRUGS (4)
  1. ATEZOLIZUMAB. [Suspect]
     Active Substance: ATEZOLIZUMAB
     Indication: LUNG ADENOCARCINOMA STAGE II
     Route: 041
  2. CISPLATIN. [Concomitant]
     Active Substance: CISPLATIN
  3. LIDOCAINE. [Concomitant]
     Active Substance: LIDOCAINE
  4. AMIODARONE [Concomitant]
     Active Substance: AMIODARONE

REACTIONS (1)
  - Myocarditis [Recovering/Resolving]
